FAERS Safety Report 15967111 (Version 2)
Quarter: 2019Q1

REPORT INFORMATION
  Report Type: Spontaneous
  Country: CH (occurrence: CH)
  Receive Date: 20190215
  Receipt Date: 20190305
  Transmission Date: 20190418
  Serious: Yes (Other)
  Sender: FDA-Public Use
  Company Number: CH-SA-2019SA042524

PATIENT
  Age: 89 Year
  Sex: Male

DRUGS (19)
  1. PRADAXA [Concomitant]
     Active Substance: DABIGATRAN ETEXILATE MESYLATE
     Dosage: UNK
     Dates: start: 20190117
  2. RESONIUM A [Concomitant]
     Active Substance: SODIUM POLYSTYRENE SULFONATE
     Dosage: UNK
     Dates: start: 20190112, end: 20190113
  3. XATRAL [Suspect]
     Active Substance: ALFUZOSIN
     Dosage: 10 MG, QD
     Route: 048
     Dates: start: 20190105, end: 20190111
  4. CLEXANE [Concomitant]
     Active Substance: ENOXAPARIN SODIUM
     Dosage: UNK
     Dates: start: 20190109, end: 20190117
  5. BELOC ZOK [Concomitant]
     Active Substance: METOPROLOL SUCCINATE
     Dosage: UNK
  6. PRAVASTATINE [PRAVASTATIN SODIUM] [Concomitant]
     Dosage: UNK
  7. TORASEMIDE [TORASEMIDE SODIUM] [Concomitant]
     Dosage: UNK
  8. SINTROM [Concomitant]
     Active Substance: ACENOCOUMAROL
     Dosage: UNK
  9. ANORO ELLIPTA [Concomitant]
     Active Substance: UMECLIDINIUM BROMIDE\VILANTEROL TRIFENATATE
     Dosage: UNK
  10. NITRODERM [Concomitant]
     Active Substance: NITROGLYCERIN
     Dosage: UNK
  11. DAFALGAN [Concomitant]
     Active Substance: ACETAMINOPHEN
     Dosage: UNK UNK, PRN
     Dates: start: 20190107
  12. PRADIF [Suspect]
     Active Substance: TAMSULOSIN HYDROCHLORIDE
     Dosage: 400 UG, QD
     Route: 048
     Dates: start: 20190108, end: 20190111
  13. ACIDUM FOLICUM [Concomitant]
     Active Substance: FOLIC ACID
     Dosage: UNK
     Dates: start: 20190107, end: 20190119
  14. PREDNISONE. [Concomitant]
     Active Substance: PREDNISONE
     Dosage: UNK
  15. OCULAC [POVIDONE] [Concomitant]
     Dosage: UNK
     Dates: start: 20190108
  16. LAXOBERON [Concomitant]
     Active Substance: SODIUM PICOSULFATE
     Dosage: UNK, PRN
     Dates: start: 20190107, end: 20190123
  17. LUVIT D3 [Concomitant]
     Active Substance: CHOLECALCIFEROL
     Dosage: UNK
  18. IPRAMOL [Concomitant]
     Active Substance: ALBUTEROL SULFATE\IPRATROPIUM BROMIDE
     Dosage: UNK, PRN
     Dates: start: 20190107, end: 20190123
  19. PURSANA [Concomitant]
     Active Substance: FIG FRUIT OIL\SORBITOL
     Dosage: UNK, PRN

REACTIONS (1)
  - Thrombocytopenia [Recovered/Resolved]

NARRATIVE: CASE EVENT DATE: 20190107
